FAERS Safety Report 6961801-9 (Version None)
Quarter: 2010Q3

REPORT INFORMATION
  Report Type: 
  Country: None (occurrence: None)
  Receive Date: 20100901
  Receipt Date: 20100826
  Transmission Date: 20110219
  Serious: Yes (Other)
  Sender: FDA-Public Use
  Company Number: US-GILEAD-2010-0031211

PATIENT
  Sex: Male

DRUGS (10)
  1. LETAIRIS [Suspect]
     Indication: PULMONARY ARTERIAL HYPERTENSION
     Route: 048
     Dates: start: 20100322
  2. TYLENOL-500 [Suspect]
  3. TYVASO [Suspect]
  4. REVATIO [Concomitant]
  5. DIGOXIN [Concomitant]
  6. COUMADIN [Concomitant]
  7. DIOVAN HCT [Concomitant]
  8. TOPROL-XL [Concomitant]
  9. ZETIA [Concomitant]
  10. ALAVERT [Concomitant]

REACTIONS (2)
  - HEPATIC ENZYME INCREASED [None]
  - LIPOMA [None]
